FAERS Safety Report 7451192-1 (Version None)
Quarter: 2011Q2

REPORT INFORMATION
  Report Type: 
  Country: None (occurrence: None)
  Receive Date: 20110502
  Receipt Date: 20110420
  Transmission Date: 20111010
  Serious: Yes (Other)
  Sender: FDA-Public Use
  Company Number: PHHY2011JP33384

PATIENT
  Age: 87 Year
  Sex: Female
  Weight: 41.6 kg

DRUGS (7)
  1. MUCODYNE [Concomitant]
     Dosage: 1500 MG, UNK
  2. ONON [Concomitant]
     Dosage: 450 MG, UNK
  3. BIOFERMIN [Concomitant]
  4. TEGRETOL [Suspect]
     Indication: EPILEPSY
     Dosage: 600 MG, UNK
  5. ASPIRIN [Concomitant]
     Dosage: 100 MG, UNK
  6. HOKUNALIN [Concomitant]
     Dosage: 2 MG, UNK
  7. MAGNESIUM OXIDE [Concomitant]
     Dosage: 1.5 G, UNK

REACTIONS (9)
  - NASOPHARYNGITIS [None]
  - URINARY TRACT INFECTION [None]
  - FALL [None]
  - DEMENTIA [None]
  - PNEUMONIA [None]
  - MULTIPLE FRACTURES [None]
  - ASTHMA [None]
  - CARDIAC FAILURE [None]
  - BRADYCARDIA [None]
